FAERS Safety Report 17375176 (Version 1)
Quarter: 2020Q1

REPORT INFORMATION
  Report Type: Spontaneous
  Country: JP (occurrence: JP)
  Receive Date: 20200205
  Receipt Date: 20200205
  Transmission Date: 20200409
  Serious: Yes (Other)
  Sender: FDA-Public Use
  Company Number: JP-PFIZER INC-2020044025

PATIENT
  Age: 80 Year
  Sex: Male

DRUGS (2)
  1. GASTER [Concomitant]
     Active Substance: FAMOTIDINE
  2. CELECOX [Suspect]
     Active Substance: CELECOXIB
     Indication: PERIARTHRITIS
     Dosage: UNK UNK, 2X/DAY
     Route: 048
     Dates: start: 201703, end: 20200110

REACTIONS (3)
  - Anaemia [Unknown]
  - Gastrointestinal erosion [Unknown]
  - Gastritis haemorrhagic [Unknown]
